FAERS Safety Report 26137035 (Version 1)
Quarter: 2025Q4

REPORT INFORMATION
  Report Type: Spontaneous
  Country: CN (occurrence: CN)
  Receive Date: 20251209
  Receipt Date: 20251209
  Transmission Date: 20260118
  Serious: Yes (Hospitalization, Other)
  Sender: MERCK SHARP & DOHME LLC
  Company Number: CN-009507513-2356609

PATIENT
  Age: 54 Year
  Sex: Female
  Weight: 39 kg

DRUGS (9)
  1. PEMBROLIZUMAB [Suspect]
     Active Substance: PEMBROLIZUMAB
     Indication: Cervix carcinoma recurrent
     Route: 065
     Dates: start: 2025, end: 2025
  2. PEMBROLIZUMAB [Suspect]
     Active Substance: PEMBROLIZUMAB
     Indication: Cervix carcinoma recurrent
     Dosage: TIME INTERVAL: TOTAL: ROUTE: INJECTION VIA PUMP; 2ND DOSE
     Route: 042
     Dates: start: 20251106, end: 20251106
  3. PACLITAXEL [Suspect]
     Active Substance: PACLITAXEL
     Indication: Cervix carcinoma recurrent
     Dosage: TIME INTERVAL: TOTAL: ROUTE: INJECTION VIA PUMP
     Route: 042
     Dates: start: 20251106, end: 20251106
  4. PACLITAXEL [Suspect]
     Active Substance: PACLITAXEL
     Indication: Cervix carcinoma recurrent
     Dosage: TIME INTERVAL: TOTAL: ROUTE: INJECTION VIA PUMP
     Route: 042
     Dates: start: 20251127, end: 20251127
  5. CISPLATIN [Suspect]
     Active Substance: CISPLATIN
     Indication: Cervix carcinoma recurrent
     Dosage: TIME INTERVAL: TOTAL
     Route: 041
     Dates: start: 20251106, end: 20251106
  6. CISPLATIN [Suspect]
     Active Substance: CISPLATIN
     Indication: Cervix carcinoma recurrent
     Dosage: TIME INTERVAL: TOTAL
     Route: 041
     Dates: start: 20251127, end: 20251127
  7. SODIUM CHLORIDE [Concomitant]
     Active Substance: SODIUM CHLORIDE
     Indication: Vehicle solution use
     Dosage: TIME INTERVAL: TOTAL: ROUTE: INJECTION VIA PUMP
     Route: 042
     Dates: start: 20251106, end: 20251106
  8. SODIUM CHLORIDE [Concomitant]
     Active Substance: SODIUM CHLORIDE
     Indication: Vehicle solution use
     Dosage: TIME INTERVAL: TOTAL: ROUTE: INJECTION VIA PUMP
     Route: 042
     Dates: start: 20251106, end: 20251106
  9. SODIUM CHLORIDE [Concomitant]
     Active Substance: SODIUM CHLORIDE
     Indication: Vehicle solution use
     Dosage: TIME INTERVAL: TOTAL
     Route: 041
     Dates: start: 20251106, end: 20251106

REACTIONS (2)
  - Myelosuppression [Recovering/Resolving]
  - Myelosuppression [Unknown]

NARRATIVE: CASE EVENT DATE: 20250101
